FAERS Safety Report 15216194 (Version 4)
Quarter: 2018Q4

REPORT INFORMATION
  Report Type: Report from Study
  Country: US (occurrence: US)
  Receive Date: 20180730
  Receipt Date: 20181113
  Transmission Date: 20190204
  Serious: Yes (Hospitalization)
  Sender: FDA-Public Use
  Company Number: US-EXELIXIS-CABO-18015128

PATIENT
  Age: 74 Year
  Sex: Male

DRUGS (21)
  1. ASPIRIN. [Concomitant]
     Active Substance: ASPIRIN
  2. METOLAZONE. [Concomitant]
     Active Substance: METOLAZONE
  3. METOPROLOL TARTRATE. [Concomitant]
     Active Substance: METOPROLOL TARTRATE
  4. VALSARTAN. [Concomitant]
     Active Substance: VALSARTAN
  5. CABOMETYX [Suspect]
     Active Substance: CABOZANTINIB S-MALATE
     Indication: RENAL CANCER
     Dosage: UNK
  6. CABOMETYX [Suspect]
     Active Substance: CABOZANTINIB S-MALATE
     Dosage: 20 MG, QD
     Route: 048
     Dates: start: 20180721
  7. HYDROCHLOROTH [Concomitant]
     Active Substance: HYDROCHLOROTHIAZIDE
  8. TAMSULOSIN [Concomitant]
     Active Substance: TAMSULOSIN
  9. ELIQUIS [Concomitant]
     Active Substance: APIXABAN
  10. PRAVASTATIN. [Concomitant]
     Active Substance: PRAVASTATIN
  11. ZOCOR [Concomitant]
     Active Substance: SIMVASTATIN
  12. LEVOTHYROXINE. [Concomitant]
     Active Substance: LEVOTHYROXINE
  13. AMLODIPINE [Concomitant]
     Active Substance: AMLODIPINE BESYLATE
  14. OXYCODONE [Concomitant]
     Active Substance: OXYCODONE
  15. TOUJEO [Concomitant]
     Active Substance: INSULIN GLARGINE
  16. AVAPRO [Concomitant]
     Active Substance: IRBESARTAN
  17. FENOFIBRATE. [Concomitant]
     Active Substance: FENOFIBRATE
  18. ESCITALOPRAM [Concomitant]
     Active Substance: ESCITALOPRAM OXALATE
  19. HUMALOG [Concomitant]
     Active Substance: INSULIN LISPRO
  20. PLAVIX [Concomitant]
     Active Substance: CLOPIDOGREL BISULFATE
  21. RANEXA [Concomitant]
     Active Substance: RANOLAZINE

REACTIONS (4)
  - Mouth ulceration [Unknown]
  - Diarrhoea [Unknown]
  - Product dose omission [Unknown]
  - Stomatitis [Not Recovered/Not Resolved]

NARRATIVE: CASE EVENT DATE: 201808
